FAERS Safety Report 8166126-4 (Version None)
Quarter: 2012Q1

REPORT INFORMATION
  Report Type: 
  Country: None (occurrence: None)
  Receive Date: 20120227
  Receipt Date: 20110330
  Transmission Date: 20120608
  Serious: No
  Sender: FDA-Public Use
  Company Number: US-MYLANLABS-2011S1006510

PATIENT
  Age: 16 Year
  Sex: Male
  Weight: 92.99 kg

DRUGS (2)
  1. AMNESTEEM [Suspect]
     Route: 048
     Dates: start: 20110226, end: 20110315
  2. AMNESTEEM [Suspect]
     Indication: ACNE
     Route: 048
     Dates: start: 20110126, end: 20110226

REACTIONS (1)
  - BLOOD TRIGLYCERIDES INCREASED [None]
